FAERS Safety Report 9286041 (Version 1)
Quarter: 2013Q2

REPORT INFORMATION
  Report Type: Spontaneous
  Country: US (occurrence: US)
  Receive Date: 20130513
  Receipt Date: 20130513
  Transmission Date: 20140414
  Serious: Yes (Other)
  Sender: FDA-Public Use
  Company Number: US-BAYER-2013-056123

PATIENT
  Age: 31 Year
  Sex: Female

DRUGS (1)
  1. MIRENA [Suspect]
     Dosage: 20 MCG/24HR, CONT
     Route: 015
     Dates: start: 201010, end: 20101206

REACTIONS (8)
  - Uterine perforation [None]
  - Post procedural discomfort [None]
  - Procedural haemorrhage [None]
  - Abdominal pain [None]
  - Pyrexia [None]
  - Fear [None]
  - Injury [None]
  - Device difficult to use [None]
